FAERS Safety Report 8463733-6 (Version None)
Quarter: 2012Q2

REPORT INFORMATION
  Report Type: 
  Country: None (occurrence: None)
  Receive Date: 20120625
  Receipt Date: 20120619
  Transmission Date: 20120825
  Serious: Yes (Death)
  Sender: FDA-Public Use
  Company Number: US-CELGENEUS-163-50794-11070737

PATIENT

DRUGS (4)
  1. VORINOSTAT [Suspect]
     Dosage: 200 MILLIGRAM
     Route: 048
  2. VIDAZA [Suspect]
  3. VORINOSTAT [Suspect]
  4. VIDAZA [Suspect]
     Dosage: 75 MILLIGRAM/SQ. METER
     Route: 041

REACTIONS (3)
  - VOMITING [None]
  - NAUSEA [None]
  - NEOPLASM MALIGNANT [None]
